FAERS Safety Report 12683400 (Version 6)
Quarter: 2017Q1

REPORT INFORMATION
  Report Type: Spontaneous
  Country: US (occurrence: US)
  Receive Date: 20160825
  Receipt Date: 20170221
  Transmission Date: 20170428
  Serious: Yes (Other)
  Sender: FDA-Public Use
  Company Number: US-PFIZER INC-2016398236

PATIENT
  Age: 51 Year
  Sex: Male
  Weight: 90.7 kg

DRUGS (59)
  1. LYRICA [Suspect]
     Active Substance: PREGABALIN
     Indication: INJURY
     Dosage: 150 MG, AT BEDTIME
     Route: 048
  2. LYRICA [Suspect]
     Active Substance: PREGABALIN
     Indication: TYPE 2 DIABETES MELLITUS
     Dosage: 200 MG, 3X/DAY
     Route: 048
  3. LEVEMIR [Concomitant]
     Active Substance: INSULIN DETEMIR
     Dosage: 48 IU, 1X/DAY
     Dates: start: 1986
  4. CLOPIDOGREL [Concomitant]
     Active Substance: CLOPIDOGREL BISULFATE
     Indication: BLOOD DISORDER
     Dosage: 75 MG, DAILY (PER DAY)
     Route: 048
     Dates: start: 2008
  5. AZITHROMYCIN ANHYDROUS. [Concomitant]
     Active Substance: AZITHROMYCIN ANHYDROUS
     Dosage: 250 MG, UNK
  6. BUPROPION. [Concomitant]
     Active Substance: BUPROPION
     Dosage: 150 MG, UNK
  7. SILVER SULFADIAZINE. [Concomitant]
     Active Substance: SILVER SULFADIAZINE
     Dosage: 1 %, UNK
  8. PLAVIX [Concomitant]
     Active Substance: CLOPIDOGREL BISULFATE
     Indication: CORONARY ARTERY DISEASE
     Dosage: 75 MG, DAILY
     Route: 048
  9. ZOCOR [Concomitant]
     Active Substance: SIMVASTATIN
     Dosage: 20 MG, DAILY
     Route: 048
  10. LYRICA [Suspect]
     Active Substance: PREGABALIN
     Indication: DIABETIC NEUROPATHY
     Dosage: 100 MG, AT BEDTIME
     Route: 048
  11. LYRICA [Suspect]
     Active Substance: PREGABALIN
     Dosage: 200 MG, 2X/DAY
     Route: 048
     Dates: start: 20160623, end: 20160818
  12. METFORMIN HCL [Concomitant]
     Active Substance: METFORMIN HYDROCHLORIDE
     Dosage: 850 MG, 1X/DAY
  13. INVOKAMET [Concomitant]
     Active Substance: CANAGLIFLOZIN\METFORMIN HYDROCHLORIDE
     Indication: DIABETES MELLITUS
     Dosage: [CANAGLIFLOZIN 150MG]/[METFORMIN HYDROCHLORIDE 1000MG], ONE TABLET BY MOUTH ONCE A DAY
     Route: 048
     Dates: start: 2010
  14. GAVILYTE G [Concomitant]
     Active Substance: POLYETHYLENE GLYCOL 3350\POTASSIUM CHLORIDE\SODIUM BICARBONATE\SODIUM CHLORIDE\SODIUM SULFATE ANHYDROUS
     Dosage: 4000 ML, UNK
  15. CLEOCIN [Concomitant]
     Active Substance: CLINDAMYCIN PHOSPHATE
     Dosage: 300 MG, 3X/DAY
     Route: 048
  16. LYRICA [Suspect]
     Active Substance: PREGABALIN
     Indication: IRON DEFICIENCY ANAEMIA
     Dosage: 200 MG, AT BEDTIME
     Route: 048
  17. NOVOLOG [Concomitant]
     Active Substance: INSULIN ASPART
     Indication: DIABETES MELLITUS
     Dosage: SLIDING SCALE ONE SUBCUTANEOUS INJECTION WITH MEALS, 1X/DAY
     Route: 058
     Dates: start: 1986
  18. PANTOPRAZOLE SODIUM. [Concomitant]
     Active Substance: PANTOPRAZOLE SODIUM
     Indication: ABDOMINAL DISCOMFORT
     Dosage: 40 MG, 1X/DAY
     Route: 048
  19. METFORMIN HCL [Concomitant]
     Active Substance: METFORMIN HYDROCHLORIDE
     Indication: DIABETES MELLITUS
     Dosage: 850 MG, 2X/DAY (2 PER DAY)
     Route: 048
     Dates: start: 2000
  20. ALPRAZOLAM. [Concomitant]
     Active Substance: ALPRAZOLAM
     Indication: ANXIETY
     Dosage: 1 MG, ONE TABLET BY MOUTH EVERY FOUR TO SIX HOURS AS NEEDED
     Route: 048
  21. INSULIN [Concomitant]
     Active Substance: INSULIN NOS
     Dosage: UNK, DAILY, (^30^ A DAY)
  22. TRAMADOL HCL [Concomitant]
     Active Substance: TRAMADOL HYDROCHLORIDE
     Dosage: 50 MG, UNK
  23. LYRICA [Suspect]
     Active Substance: PREGABALIN
     Indication: GOITRE
     Dosage: 200 MG, 2X/DAY
     Route: 048
     Dates: end: 20160707
  24. ALPRAZOLAM. [Concomitant]
     Active Substance: ALPRAZOLAM
     Dosage: 1 MG, DAILY
     Route: 048
  25. HYDROCODONE/ACETAMINOPHEN [Concomitant]
     Active Substance: ACETAMINOPHEN\HYDROCODONE
     Indication: PAIN
     Dosage: UNK UNK, 4X/DAY, (ACETAMINOPHEN 325 MG/ HYDROCODONE 10 MG)
     Route: 048
  26. BETAMETHASONE DIPROPIONATE. [Concomitant]
     Active Substance: BETAMETHASONE DIPROPIONATE
     Dosage: 0.05 %, UNK
  27. MUPIROCIN. [Concomitant]
     Active Substance: MUPIROCIN
     Indication: WOUND
  28. FENOFIBRATE. [Concomitant]
     Active Substance: FENOFIBRATE
     Indication: LIPIDS
     Dosage: 160 MG, DAILY
     Route: 048
  29. ASPIRIN. [Concomitant]
     Active Substance: ASPIRIN
     Indication: CARDIAC DISORDER
     Dosage: 81 MG, DAILY (PER DAY)
     Route: 048
     Dates: start: 2010
  30. RANEXA [Concomitant]
     Active Substance: RANOLAZINE
     Indication: NEUROPATHY PERIPHERAL
     Dosage: 500 MG, DAILY (PER DAY)
     Route: 048
     Dates: start: 2010
  31. METOPROLOL TARTRATE. [Concomitant]
     Active Substance: METOPROLOL TARTRATE
     Dosage: 25 MG, DAILY (PER DAY)
     Dates: start: 2010
  32. INVOKAMET [Concomitant]
     Active Substance: CANAGLIFLOZIN\METFORMIN HYDROCHLORIDE
     Dosage: UNK, DAILY, 150-1000 MG
  33. ROPINIROLE HCL [Concomitant]
     Active Substance: ROPINIROLE HYDROCHLORIDE
     Dosage: 0.5 MG, UNK
  34. CLINDAMYCIN HCL [Concomitant]
     Active Substance: CLINDAMYCIN HYDROCHLORIDE
     Dosage: 300 MG, UNK
  35. POTASSIUM GLUCONATE [Concomitant]
     Active Substance: POTASSIUM GLUCONATE
  36. LYRICA [Suspect]
     Active Substance: PREGABALIN
     Indication: DIABETIC FOOT
     Dosage: 200 MG, 2X/DAY
     Route: 048
     Dates: end: 201606
  37. LYRICA [Suspect]
     Active Substance: PREGABALIN
     Indication: WOUND
     Dosage: UNK
     Route: 048
     Dates: start: 201001
  38. PANTOPRAZOLE SODIUM. [Concomitant]
     Active Substance: PANTOPRAZOLE SODIUM
     Dosage: 40 MG, DAILY (PER DAY)
     Dates: start: 2010
  39. METFORMIN HCL [Concomitant]
     Active Substance: METFORMIN HYDROCHLORIDE
     Dosage: 1000 MG, DAILY
     Route: 048
  40. DURAGESIC [Concomitant]
     Active Substance: FENTANYL
     Indication: PAIN
     Dosage: 100MG ONE PATCH TOPICALLY APPLIED TO SKIN EVERY THREE DAYS
     Route: 061
     Dates: start: 2010
  41. NORCO [Concomitant]
     Active Substance: ACETAMINOPHEN\HYDROCODONE BITARTRATE
     Indication: PAIN
     Dosage: 2 DF, AS NEEDED [HYDROCODONE BITARTRATE 10MG]/[ PARACETAMOL 325MG], EVERY FOUR HOURS, Q6-8HR
     Route: 048
  42. FENTANYL TRANSDERMAL SYSTEM [Concomitant]
     Active Substance: FENTANYL
     Dosage: 50 UG, UNK (50MCG/HR)
  43. FERROUS GLUCONATE [Concomitant]
     Active Substance: FERROUS GLUCONATE
     Dosage: UNK, 1X/DAY (AT NIGHT)
  44. LYRICA [Suspect]
     Active Substance: PREGABALIN
     Indication: NEUROPATHY PERIPHERAL
     Dosage: 50 MG, AT BEDTIME
     Route: 048
     Dates: start: 2010
  45. LEVEMIR [Concomitant]
     Active Substance: INSULIN DETEMIR
     Indication: DIABETES MELLITUS
     Dosage: 46 IU, 1X/DAY (46 UNITS ONE SUBCUTANEOUS INJECTION EACH MORNING)
     Route: 058
  46. SIMVASTATIN. [Concomitant]
     Active Substance: SIMVASTATIN
     Dosage: 20 MG, DAILY (PER DAY)
     Route: 048
     Dates: start: 2010
  47. INSULIN [Concomitant]
     Active Substance: INSULIN NOS
     Indication: DIABETES MELLITUS
     Dosage: UNK UNK, 2X/DAY
     Route: 030
  48. AMITRIPTYLINE HCL [Concomitant]
     Active Substance: AMITRIPTYLINE
     Dosage: 50 MG, UNK
  49. VENTOLIN HFA [Concomitant]
     Active Substance: ALBUTEROL SULFATE
     Dosage: 90 UG, UNK
  50. VITAMIN C [Concomitant]
     Active Substance: ASCORBIC ACID
     Dosage: 500 MG, 1X/DAY  (AT NIGHT)
  51. LEVAQUIN [Concomitant]
     Active Substance: LEVOFLOXACIN
     Dosage: 500 MG, DAILY
     Route: 048
  52. REQUIP [Concomitant]
     Active Substance: ROPINIROLE HYDROCHLORIDE
     Indication: RESTLESS LEGS SYNDROME
     Dosage: 0.5 MG, DAILY
     Route: 048
  53. QUINAPRIL. [Concomitant]
     Active Substance: QUINAPRIL
     Indication: BLOOD CHOLESTEROL INCREASED
     Dosage: 20 MG, DAILY (PER DAY)
     Route: 048
     Dates: start: 2010
  54. SIMVASTATIN. [Concomitant]
     Active Substance: SIMVASTATIN
     Dosage: 40 MG, UNK
  55. IRON [Concomitant]
     Active Substance: IRON
     Indication: BLOOD IRON DECREASED
     Dosage: 27 MG, DAILY
     Route: 048
     Dates: start: 201606
  56. METOPROLOL TARTRATE. [Concomitant]
     Active Substance: METOPROLOL TARTRATE
     Dosage: 25 MG, 2X/DAY
     Route: 048
  57. FENTANYL TRANSDERMAL SYSTEM [Concomitant]
     Active Substance: FENTANYL
     Dosage: 100 UG, AS NEEDED (100MCG/HR) DAILY
  58. AMOXCLAV [Concomitant]
     Dosage: (AMOXICILLIN: 875; CLAVULANATE: 125 MG)
  59. HYDROCODONE [Concomitant]
     Active Substance: HYDROCODONE

REACTIONS (11)
  - Insomnia [Unknown]
  - Drug hypersensitivity [Unknown]
  - Back disorder [Unknown]
  - Impaired healing [Not Recovered/Not Resolved]
  - Dyspepsia [Not Recovered/Not Resolved]
  - Skin ulcer [Unknown]
  - Hand deformity [Unknown]
  - Limb discomfort [Recovering/Resolving]
  - Blister [Recovered/Resolved]
  - Limb injury [Unknown]
  - Drug ineffective [Not Recovered/Not Resolved]

NARRATIVE: CASE EVENT DATE: 20100110
